FAERS Safety Report 14354737 (Version 5)
Quarter: 2019Q2

REPORT INFORMATION
  Report Type: Spontaneous
  Country: FR (occurrence: FR)
  Receive Date: 20180105
  Receipt Date: 20190529
  Transmission Date: 20190711
  Serious: Yes (Hospitalization)
  Sender: FDA-Public Use
  Company Number: FR-AUROBINDO-AUR-APL-2018-000100

PATIENT

DRUGS (12)
  1. JOSIR [Concomitant]
     Active Substance: TAMSULOSIN
     Indication: BENIGN PROSTATIC HYPERPLASIA
     Dosage: 1 DOSAGE FORM, ONCE A DAY
     Route: 048
  2. DOLIPRANE [Concomitant]
     Active Substance: ACETAMINOPHEN
     Indication: NEURALGIA
     Dosage: 1 DOSAGE FORM, ONCE A DAY
     Route: 048
     Dates: start: 20171018
  3. TRAMADOL. [Suspect]
     Active Substance: TRAMADOL
     Dosage: 150 MILLIGRAM, ONCE A DAY IF NECESSARY
     Route: 048
     Dates: start: 20171018, end: 20171023
  4. KARDEGIC [Concomitant]
     Active Substance: ASPIRIN DL-LYSINE
     Indication: ATRIAL FIBRILLATION
     Dosage: 1 DOSAGE FORM, ONCE A DAY
     Route: 048
  5. LASILIX [Concomitant]
     Active Substance: FUROSEMIDE
     Dosage: 125 MILLIGRAM, ONCE A DAY
     Route: 048
  6. MELATONINE [Suspect]
     Active Substance: MELATONIN
     Indication: SLEEP DISORDER
     Dosage: UNK
     Route: 048
     Dates: end: 20171023
  7. NEURONTIN [Suspect]
     Active Substance: GABAPENTIN
     Indication: NEURALGIA
     Dosage: 2 DOSAGE FORM, ONCE A DAY
     Route: 048
     Dates: start: 20171020, end: 20171023
  8. BISOPROLOL FUMARATE. [Concomitant]
     Active Substance: BISOPROLOL FUMARATE
     Indication: HYPERTENSION
     Dosage: 1.25 MILLIGRAM, ONCE A DAY
     Route: 048
  9. LASILIX SPECIAL [Concomitant]
     Active Substance: FUROSEMIDE
     Indication: CHRONIC KIDNEY DISEASE
     Dosage: 250 MILLIGRAM, ONCE A DAY
     Route: 048
  10. DOLIPRANE [Concomitant]
     Active Substance: ACETAMINOPHEN
     Dosage: 3 DOSAGE FORM, ONCE A DAY
     Route: 048
     Dates: start: 20171018
  11. LASILIX [Concomitant]
     Active Substance: FUROSEMIDE
     Indication: CHRONIC KIDNEY DISEASE
     Dosage: 250 MG, ONCE A DAY
     Route: 048
  12. TRAMADOL. [Suspect]
     Active Substance: TRAMADOL
     Indication: NEURALGIA
     Dosage: 50 MG, AS NECESSARY
     Route: 048
     Dates: start: 20171018, end: 20171023

REACTIONS (2)
  - Myoclonus [Recovered/Resolved]
  - Tremor [Recovered/Resolved]

NARRATIVE: CASE EVENT DATE: 20171020
